FAERS Safety Report 11075414 (Version 1)
Quarter: 2015Q2

REPORT INFORMATION
  Report Type: Spontaneous
  Country: US (occurrence: US)
  Receive Date: 20150429
  Receipt Date: 20150429
  Transmission Date: 20150821
  Serious: No
  Sender: FDA-Public Use
  Company Number: US-BIOGENIDEC-2015BI055536

PATIENT
  Age: 59 Year
  Sex: Female

DRUGS (2)
  1. BENADRYL [Concomitant]
     Active Substance: DIPHENHYDRAMINE HYDROCHLORIDE
     Dates: start: 20150419
  2. TECFIDERA [Suspect]
     Active Substance: DIMETHYL FUMARATE
     Indication: MULTIPLE SCLEROSIS

REACTIONS (8)
  - Irritable bowel syndrome [Unknown]
  - Generalised erythema [Unknown]
  - Burning sensation [Unknown]
  - Flushing [Recovered/Resolved]
  - Fatigue [Unknown]
  - Fibromyalgia [Unknown]
  - Hearing impaired [Unknown]
  - Feeling hot [Unknown]

NARRATIVE: CASE EVENT DATE: 20150419
